FAERS Safety Report 16395049 (Version 9)
Quarter: 2021Q2

REPORT INFORMATION
  Report Type: Spontaneous
  Country: US (occurrence: US)
  Receive Date: 20190605
  Receipt Date: 20210518
  Transmission Date: 20210716
  Serious: Yes (Other)
  Sender: FDA-Public Use
  Company Number: US-OTSUKA-2018_011793

PATIENT
  Age: 57 Year
  Sex: Female

DRUGS (16)
  1. LAMOTRIGINE. [Concomitant]
     Active Substance: LAMOTRIGINE
     Indication: PRODUCT USED FOR UNKNOWN INDICATION
     Dosage: UNK
     Route: 065
  2. ESCITALOPRAM [Concomitant]
     Active Substance: ESCITALOPRAM OXALATE
     Indication: PRODUCT USED FOR UNKNOWN INDICATION
     Dosage: UNK
     Route: 065
  3. LAMICTAL [Suspect]
     Active Substance: LAMOTRIGINE
     Indication: MANIA
  4. LEXAPRO [Concomitant]
     Active Substance: ESCITALOPRAM OXALATE
     Indication: MANIA
  5. ABILIFY [Suspect]
     Active Substance: ARIPIPRAZOLE
     Indication: MENTAL DISORDER
  6. HYDROXYZINE [Concomitant]
     Active Substance: HYDROXYZINE HYDROCHLORIDE
     Indication: ANXIETY
     Dosage: UNK
     Route: 065
  7. ADDERALL [Concomitant]
     Active Substance: AMPHETAMINE ASPARTATE\AMPHETAMINE SULFATE\DEXTROAMPHETAMINE SACCHARATE\DEXTROAMPHETAMINE SULFATE
     Indication: PRODUCT USED FOR UNKNOWN INDICATION
     Dosage: UNK
     Route: 065
  8. ABILIFY [Suspect]
     Active Substance: ARIPIPRAZOLE
     Indication: POST-TRAUMATIC STRESS DISORDER
     Dosage: 5 MG, QD
     Route: 065
     Dates: start: 2008
  9. ABILIFY [Suspect]
     Active Substance: ARIPIPRAZOLE
     Indication: MANIA
     Dosage: 5 MG, QD
     Route: 065
     Dates: start: 2007, end: 2015
  10. LAMICTAL [Suspect]
     Active Substance: LAMOTRIGINE
     Indication: POST-TRAUMATIC STRESS DISORDER
     Dosage: 200 MG, UNK
     Route: 065
     Dates: start: 2003
  11. COGENTIN [Concomitant]
     Active Substance: BENZTROPINE MESYLATE
     Indication: PRODUCT USED FOR UNKNOWN INDICATION
     Dosage: UNK
     Route: 065
  12. ABILIFY [Suspect]
     Active Substance: ARIPIPRAZOLE
     Indication: PSYCHOTIC SYMPTOM
     Dosage: 10 MG, QD
     Route: 065
  13. LAMICTAL [Suspect]
     Active Substance: LAMOTRIGINE
     Indication: MENTAL DISORDER
  14. ARIPIPRAZOLE. [Suspect]
     Active Substance: ARIPIPRAZOLE
     Indication: PRODUCT USED FOR UNKNOWN INDICATION
     Dosage: 5 MG, UNK
     Route: 065
     Dates: start: 2015
  15. LEXAPRO [Concomitant]
     Active Substance: ESCITALOPRAM OXALATE
     Indication: POST-TRAUMATIC STRESS DISORDER
     Dosage: UNK
     Route: 065
  16. LEXAPRO [Concomitant]
     Active Substance: ESCITALOPRAM OXALATE
     Indication: MENTAL DISORDER

REACTIONS (61)
  - Fear of death [Not Recovered/Not Resolved]
  - Emotional disorder [Unknown]
  - Skin haemorrhage [Not Recovered/Not Resolved]
  - Physical disability [Unknown]
  - Disturbance in attention [Unknown]
  - Irritability [Not Recovered/Not Resolved]
  - Pain [Unknown]
  - Obsessive-compulsive disorder [Not Recovered/Not Resolved]
  - Drug dependence [Unknown]
  - Blepharospasm [Unknown]
  - Hypoaesthesia [Unknown]
  - Affect lability [Unknown]
  - Fall [Unknown]
  - Drug ineffective [Unknown]
  - Dependence [Unknown]
  - Obsessive thoughts [Unknown]
  - Scab [Not Recovered/Not Resolved]
  - Gait disturbance [Unknown]
  - Intentional self-injury [Not Recovered/Not Resolved]
  - Personal relationship issue [Unknown]
  - Suicidal behaviour [Recovered/Resolved]
  - Frustration tolerance decreased [Unknown]
  - Mental disorder [Not Recovered/Not Resolved]
  - Dysarthria [Unknown]
  - Compulsions [Unknown]
  - Asthenia [Unknown]
  - Depression [Not Recovered/Not Resolved]
  - Mood swings [Not Recovered/Not Resolved]
  - Mental impairment [Unknown]
  - Dementia [Not Recovered/Not Resolved]
  - Dyskinesia [Unknown]
  - Fatigue [Unknown]
  - Therapy cessation [Unknown]
  - Headache [Not Recovered/Not Resolved]
  - Gambling disorder [Recovered/Resolved]
  - Dissociative identity disorder [Not Recovered/Not Resolved]
  - Loss of personal independence in daily activities [Unknown]
  - Mental status changes [Recovered/Resolved]
  - Psychiatric symptom [Unknown]
  - Nervousness [Unknown]
  - Product dose omission issue [Unknown]
  - Product substitution issue [Unknown]
  - Therapy interrupted [Unknown]
  - Blood blister [Unknown]
  - Scratch [Not Recovered/Not Resolved]
  - Pain in extremity [Unknown]
  - Thinking abnormal [Not Recovered/Not Resolved]
  - Fear [Not Recovered/Not Resolved]
  - Anger [Not Recovered/Not Resolved]
  - Memory impairment [Unknown]
  - Alopecia [Not Recovered/Not Resolved]
  - Product use in unapproved indication [Unknown]
  - Neck mass [Unknown]
  - Stress [Not Recovered/Not Resolved]
  - Pneumonia [Unknown]
  - Hypersomnia [Unknown]
  - Rash [Unknown]
  - Impulse-control disorder [Not Recovered/Not Resolved]
  - Insurance issue [Unknown]
  - Therapeutic response changed [Unknown]
  - Product dose omission issue [Unknown]

NARRATIVE: CASE EVENT DATE: 2007
